FAERS Safety Report 6310230-X (Version None)
Quarter: 2009Q3

REPORT INFORMATION
  Report Type: 
  Country: None (occurrence: None)
  Receive Date: 20090811
  Receipt Date: 20080728
  Transmission Date: 20100115
  Serious: Yes (Hospitalization)
  Sender: FDA-Public Use
  Company Number: KV200801318

PATIENT
  Sex: Male

DRUGS (6)
  1. MORPHINE SULFATE [Suspect]
     Indication: PAIN
     Dosage: 60 MG, BID, ORAL
     Route: 048
     Dates: start: 20060101
  2. MORPHINE SULFATE [Suspect]
     Indication: BREAKTHROUGH PAIN
     Dosage: 15 MG, QID, ORAL
     Route: 048
  3. CYMBALTA [Concomitant]
  4. LEVOTHYROXINE SODIUM [Concomitant]
  5. ATRIPLA (EFAVIRENZ, EMTRICITABINE, TENOFOVIR DISOPROXIL FUMARATE) [Concomitant]
  6. MULTIVITAMIN (VITAMIN NOS) [Concomitant]

REACTIONS (9)
  - CONTUSION [None]
  - FALL [None]
  - LOSS OF CONSCIOUSNESS [None]
  - OEDEMA PERIPHERAL [None]
  - PAIN IN EXTREMITY [None]
  - PALPITATIONS [None]
  - POSTOPERATIVE WOUND INFECTION [None]
  - PYREXIA [None]
  - VOMITING [None]
